FAERS Safety Report 9009574 (Version 1)
Quarter: 2013Q1

REPORT INFORMATION
  Report Type: Report from Study
  Country: US (occurrence: US)
  Receive Date: 20130110
  Receipt Date: 20130110
  Transmission Date: 20140127
  Serious: Yes (Hospitalization)
  Sender: FDA-Public Use
  Company Number: US-PFIZER INC-2013002904

PATIENT
  Age: 35 Year
  Sex: Female
  Weight: 68.7 kg

DRUGS (2)
  1. TEMSIROLIMUS [Suspect]
     Indication: BREAST CANCER
     Dosage: 15 MG, OTHER (ON DAYS 1, 8, 15 AND 22 )
     Route: 042
     Dates: start: 20121018
  2. CIXUTUMUMAB [Suspect]
     Indication: BREAST CANCER
     Dosage: 4 MG/KG, OTHER (ON DAYS 8, 15, AND 22)
     Route: 042
     Dates: start: 20121025

REACTIONS (2)
  - Stomatitis [Recovered/Resolved]
  - Dehydration [Unknown]
